FAERS Safety Report 25109918 (Version 9)
Quarter: 2025Q3

REPORT INFORMATION
  Report Type: Spontaneous
  Country: US (occurrence: US)
  Receive Date: 20250324
  Receipt Date: 20250714
  Transmission Date: 20251021
  Serious: Yes (Disabling, Other)
  Sender: AMGEN
  Company Number: US-AMGEN-USASP2025054826

PATIENT
  Age: 66 Year
  Sex: Female

DRUGS (16)
  1. TEPEZZA [Suspect]
     Active Substance: TEPROTUMUMAB-TRBW
     Indication: Endocrine ophthalmopathy
     Dosage: 710 MILLIGRAM, Q3WK (10 MG/KG FIRST DOSE)
     Route: 040
     Dates: start: 20230317
  2. TEPEZZA [Suspect]
     Active Substance: TEPROTUMUMAB-TRBW
     Indication: Graves^ disease
     Dosage: 1390 MILLIGRAM, Q3WK (20/MG/KG)
     Route: 040
     Dates: start: 20230407
  3. TEPEZZA [Suspect]
     Active Substance: TEPROTUMUMAB-TRBW
     Dosage: 1410 MILLIGRAM, Q3WK (DOSE 3) (20 MG/KG)
     Route: 040
     Dates: start: 20230428
  4. TEPEZZA [Suspect]
     Active Substance: TEPROTUMUMAB-TRBW
     Dosage: 1400 MILLIGRAM, Q3WK (20 MG/KG)
     Route: 040
     Dates: start: 20230522
  5. TEPEZZA [Suspect]
     Active Substance: TEPROTUMUMAB-TRBW
     Dosage: 1410 MILLIGRAM, Q3WK (20 MG/KG)
     Route: 040
     Dates: start: 20230612
  6. TEPEZZA [Suspect]
     Active Substance: TEPROTUMUMAB-TRBW
     Dosage: 1420 MILLIGRAM, Q3WK (20 MG/KG)
     Route: 040
     Dates: start: 20230705
  7. TEPEZZA [Suspect]
     Active Substance: TEPROTUMUMAB-TRBW
     Dosage: 1400 MILLIGRAM, Q3WK (20 MG/KG)
     Route: 040
     Dates: start: 20230727
  8. TEPEZZA [Suspect]
     Active Substance: TEPROTUMUMAB-TRBW
     Dosage: 1400 MILLIGRAM, Q3WK (FINAL DOSE) (20 MG/KG)
     Route: 040
     Dates: start: 20230818
  9. PREDNISONE [Suspect]
     Active Substance: PREDNISONE
     Indication: Endocrine ophthalmopathy
     Dosage: 20 MILLIGRAM, QD
     Route: 048
     Dates: start: 202212
  10. IMODIUM [Concomitant]
     Active Substance: LOPERAMIDE HYDROCHLORIDE
     Route: 065
  11. FLONASE ALLERGY RELIEF [Concomitant]
     Active Substance: FLUTICASONE PROPIONATE
     Dosage: UNK UNK, QD (SPRAY 1 -2 SPRAY)
     Route: 045
     Dates: start: 20230317
  12. LEVOTHYROXINE [Concomitant]
     Active Substance: LEVOTHYROXINE
     Dosage: 75 MICROGRAM, QD
     Route: 048
     Dates: start: 20230317
  13. SODIUM CHLORIDE [Concomitant]
     Active Substance: SODIUM CHLORIDE
     Route: 065
  14. PEPCID [Concomitant]
     Active Substance: FAMOTIDINE
     Route: 040
     Dates: start: 20230317
  15. PEPCID [Concomitant]
     Active Substance: FAMOTIDINE
     Route: 040
     Dates: start: 20230407
  16. PEPCID [Concomitant]
     Active Substance: FAMOTIDINE
     Route: 040
     Dates: start: 20230428

REACTIONS (24)
  - Deafness neurosensory [Not Recovered/Not Resolved]
  - Endocrine ophthalmopathy [Unknown]
  - Graves^ disease [Unknown]
  - Apnoea [Unknown]
  - Drug ineffective [Unknown]
  - Tinnitus [Not Recovered/Not Resolved]
  - Pain [Unknown]
  - Emotional distress [Unknown]
  - Anxiety [Unknown]
  - Impaired quality of life [Unknown]
  - Discomfort [Unknown]
  - Product use complaint [Unknown]
  - Abdominal discomfort [Not Recovered/Not Resolved]
  - Blood pressure diastolic decreased [Unknown]
  - Blood pressure increased [Unknown]
  - Arthralgia [Unknown]
  - Pain in extremity [Unknown]
  - Sinusitis [Unknown]
  - Balance disorder [Unknown]
  - Memory impairment [Unknown]
  - Cerumen removal [Unknown]
  - Ear discomfort [Not Recovered/Not Resolved]
  - Muscle spasms [Unknown]
  - Nausea [Unknown]

NARRATIVE: CASE EVENT DATE: 20230101
